FAERS Safety Report 19297114 (Version 1)
Quarter: 2021Q2

REPORT INFORMATION
  Report Type: Spontaneous
  Country: US (occurrence: US)
  Receive Date: 20210524
  Receipt Date: 20210524
  Transmission Date: 20210717
  Serious: Yes (Other)
  Sender: FDA-Public Use
  Company Number: US-PURDUE-USA-2020-0167983

PATIENT
  Sex: Male

DRUGS (22)
  1. BUTRANS [Suspect]
     Active Substance: BUPRENORPHINE
     Indication: ARTHRALGIA
     Dosage: UNK
     Route: 062
  2. BUTRANS [Suspect]
     Active Substance: BUPRENORPHINE
     Indication: BACK PAIN
  3. OXYCODONE HCL CR TABLETS (SIMILAR TO NDA 22?272) [Suspect]
     Active Substance: OXYCODONE HYDROCHLORIDE
     Indication: BACK PAIN
  4. RYZOLT [Suspect]
     Active Substance: TRAMADOL HYDROCHLORIDE
     Indication: BACK PAIN
  5. OXYCONTIN [Suspect]
     Active Substance: OXYCODONE HYDROCHLORIDE
     Indication: BACK PAIN
  6. MS CONTIN [Suspect]
     Active Substance: MORPHINE SULFATE
     Indication: ARTHRALGIA
     Dosage: UNK
     Route: 048
  7. MORPHINE SULFATE EXTENDED?RELEASE TABLETS (RHODES 74?769, 74?862) [Suspect]
     Active Substance: MORPHINE SULFATE
     Indication: BACK PAIN
  8. OXYIR [Suspect]
     Active Substance: OXYCODONE HYDROCHLORIDE
     Indication: ARTHRALGIA
     Dosage: UNK
     Route: 065
  9. BUPRENORPHINE TRANSDERMAL PATCH (SIMILAR TO NDA 21?306) [Suspect]
     Active Substance: BUPRENORPHINE
     Indication: ARTHRALGIA
     Dosage: UNK
     Route: 062
  10. DILAUDID [Suspect]
     Active Substance: HYDROMORPHONE HYDROCHLORIDE
     Indication: BACK PAIN
  11. OXYCODONE HCL CR TABLETS (SIMILAR TO NDA 22?272) [Suspect]
     Active Substance: OXYCODONE HYDROCHLORIDE
     Indication: ARTHRALGIA
     Dosage: UNK
     Route: 048
  12. OXYIR [Suspect]
     Active Substance: OXYCODONE HYDROCHLORIDE
     Indication: BACK PAIN
  13. HYDROMORPHONE TABLET (RHODES) [Suspect]
     Active Substance: HYDROMORPHONE
     Indication: BACK PAIN
  14. MORPHINE SULFATE EXTENDED?RELEASE TABLETS (RHODES 74?769, 74?862) [Suspect]
     Active Substance: MORPHINE SULFATE
     Indication: ARTHRALGIA
     Dosage: UNK
     Route: 048
  15. OXYCODONE/ ACETAMINOPHEN TABLETS [Suspect]
     Active Substance: ACETAMINOPHEN\OXYCODONE HYDROCHLORIDE
     Indication: ARTHRALGIA
     Dosage: UNK
     Route: 048
  16. MS CONTIN [Suspect]
     Active Substance: MORPHINE SULFATE
     Indication: BACK PAIN
  17. RYZOLT [Suspect]
     Active Substance: TRAMADOL HYDROCHLORIDE
     Indication: ARTHRALGIA
     Dosage: UNK
     Route: 065
  18. DILAUDID [Suspect]
     Active Substance: HYDROMORPHONE HYDROCHLORIDE
     Indication: ARTHRALGIA
     Dosage: UNK
     Route: 048
  19. HYDROMORPHONE TABLET (RHODES) [Suspect]
     Active Substance: HYDROMORPHONE
     Indication: ARTHRALGIA
     Dosage: UNK
     Route: 048
  20. OXYCODONE/ ACETAMINOPHEN TABLETS [Suspect]
     Active Substance: ACETAMINOPHEN\OXYCODONE HYDROCHLORIDE
     Indication: BACK PAIN
  21. OXYCONTIN [Suspect]
     Active Substance: OXYCODONE HYDROCHLORIDE
     Indication: ARTHRALGIA
     Dosage: UNK
     Route: 048
  22. BUPRENORPHINE TRANSDERMAL PATCH (SIMILAR TO NDA 21?306) [Suspect]
     Active Substance: BUPRENORPHINE
     Indication: BACK PAIN

REACTIONS (2)
  - Drug dependence [Recovered/Resolved]
  - Overdose [Unknown]

NARRATIVE: CASE EVENT DATE: 2009
